FAERS Safety Report 4559482-7 (Version None)
Quarter: 2005Q1

REPORT INFORMATION
  Report Type: 
  Country: None (occurrence: None)
  Receive Date: 20050119
  Receipt Date: 20050112
  Transmission Date: 20050727
  Serious: Yes (Hospitalization)
  Sender: FDA-Public Use
  Company Number: 2005011160

PATIENT
  Age: 56 Year
  Sex: Female
  Weight: 67 kg

DRUGS (11)
  1. AMLODIPINE [Suspect]
     Indication: HYPERTENSION
     Dosage: 5 MG (5 MG, 1 IN 1 D),ORAL
     Route: 048
     Dates: start: 20040628, end: 20040928
  2. FUROSEMIDE [Concomitant]
     Indication: RENAL FAILURE CHRONIC
     Dosage: 120 MG (60 MG, 2 IN 1 D), ORAL
     Route: 048
     Dates: end: 20041013
  3. ALFACALCIFOL (ALFACALCIDOL) [Concomitant]
  4. FUROSEMIDE [Concomitant]
  5. OMEPRAZOLE [Concomitant]
  6. AZOSEMIDE (AZOSEMIDE) [Concomitant]
  7. LOSARTAN POTASSIUM [Concomitant]
  8. ENALAPRIL MALEATE [Concomitant]
  9. DILAZEP DIHYDROCHLORIDE (DILAZEP DIHYDROCHLORIDE) [Concomitant]
  10. SPINOROLACTONE (SPINOROLACTONE) [Concomitant]
  11. ATORVASTATIN (ATORVASTATIN) [Concomitant]

REACTIONS (3)
  - CONDITION AGGRAVATED [None]
  - HEPATIC INFARCTION [None]
  - LIVER DISORDER [None]
